FAERS Safety Report 20562393 (Version 1)
Quarter: 2022Q1

REPORT INFORMATION
  Report Type: Spontaneous
  Country: FR (occurrence: FR)
  Receive Date: 20220307
  Receipt Date: 20220307
  Transmission Date: 20220423
  Serious: Yes (Hospitalization)
  Sender: FDA-Public Use
  Company Number: None

PATIENT
  Age: 40 Year
  Sex: Female
  Weight: 77 kg

DRUGS (4)
  1. TRULICITY [Suspect]
     Active Substance: DULAGLUTIDE
     Indication: Weight control
     Route: 065
     Dates: start: 202111, end: 20220117
  2. ISOTRETINOIN [Suspect]
     Active Substance: ISOTRETINOIN
     Indication: Acne
     Route: 065
     Dates: start: 202111, end: 20220117
  3. DIENOGEST\ETHINYL ESTRADIOL [Suspect]
     Active Substance: DIENOGEST\ETHINYL ESTRADIOL
     Indication: Hormonal contraception
     Route: 065
     Dates: start: 20220103, end: 20220117
  4. BARICITINIB [Concomitant]
     Active Substance: BARICITINIB
     Indication: Rheumatoid arthritis
     Dosage: UNK, UNKNOWN
     Route: 065

REACTIONS (2)
  - Hepatic cytolysis [Recovering/Resolving]
  - Off label use [Unknown]

NARRATIVE: CASE EVENT DATE: 20220118
